FAERS Safety Report 10017542 (Version 2)
Quarter: 2014Q2

REPORT INFORMATION
  Report Type: Spontaneous
  Country: US (occurrence: None)
  Receive Date: 20140312
  Receipt Date: 20140425
  Transmission Date: 20141212
  Serious: Yes (Hospitalization)
  Sender: FDA-Public Use
  Company Number: UTC-045438

PATIENT
  Age: 52 Year
  Sex: Female
  Weight: 54.88 kg

DRUGS (3)
  1. REMODULIN [Suspect]
     Indication: COR PULMONALE CHRONIC
     Dosage: 180 UG/KG (0.125 UG/KG, 1 IN 1 MIN), SUBCUTANEOUS
     Route: 058
     Dates: start: 20110120
  2. COUMADIN (WARFARIN SODIUM) (UNKNOWN) [Concomitant]
  3. REVATIO (SILDENAFIL CITRATE) (UNKNOWN) [Concomitant]

REACTIONS (2)
  - Pulmonary arterial hypertension [None]
  - Condition aggravated [None]
